FAERS Safety Report 9420374 (Version 1)
Quarter: 2013Q3

REPORT INFORMATION
  Report Type: Spontaneous
  Country: GB (occurrence: None)
  Receive Date: 20130723
  Receipt Date: 20130723
  Transmission Date: 20140515
  Serious: Yes (Other)
  Sender: FDA-Public Use
  Company Number: AUR-APL-2013-05848

PATIENT
  Sex: Female

DRUGS (1)
  1. CITALOPRAM (CITALOPRAM) [Suspect]
     Indication: ANXIETY
     Route: 048
     Dates: start: 2009

REACTIONS (4)
  - Off label use [None]
  - Pregnancy [None]
  - Exposure during pregnancy [None]
  - Abortion spontaneous [None]
